FAERS Safety Report 4307311-9 (Version None)
Quarter: 2004Q1

REPORT INFORMATION
  Report Type: 
  Country: None (occurrence: None)
  Receive Date: 20040226
  Receipt Date: 20040212
  Transmission Date: 20041129
  Serious: Yes (Hospitalization, Other)
  Sender: FDA-Public Use
  Company Number: 2003120047

PATIENT
  Age: 70 Year
  Sex: Male
  Weight: 79.3795 kg

DRUGS (8)
  1. NEURONTIN [Suspect]
     Indication: MUSCLE CRAMP
     Dosage: 900 MG (300, TID), ORAL
     Route: 048
     Dates: start: 20031111, end: 20031111
  2. NEURONTIN [Suspect]
     Indication: PAIN IN EXTREMITY
     Dosage: 900 MG (300, TID), ORAL
     Route: 048
     Dates: start: 20031111, end: 20031111
  3. MINERALS NOS (MINERALS NOS) [Suspect]
     Indication: ILL-DEFINED DISORDER
     Dosage: TID
     Dates: start: 20030101
  4. AMLODIPINE BESYLATE [Concomitant]
  5. FUROSEMIDE [Concomitant]
  6. DOXAZOSIN MESYLATE [Concomitant]
  7. METOPROLOL SUCCINATE [Concomitant]
  8. HYDROCHLOROTHIAZIDE [Concomitant]

REACTIONS (29)
  - BLOOD ALBUMIN DECREASED [None]
  - BLOOD ALBUMIN INCREASED [None]
  - BLOOD BICARBONATE INCREASED [None]
  - BLOOD CREATININE INCREASED [None]
  - BLOOD GLUCOSE INCREASED [None]
  - BLOOD PHOSPHORUS INCREASED [None]
  - BLOOD PRESSURE SYSTOLIC INCREASED [None]
  - BLOOD UREA INCREASED [None]
  - BUNDLE BRANCH BLOCK RIGHT [None]
  - CARDIAC MURMUR [None]
  - CAROTID BRUIT [None]
  - DISORIENTATION [None]
  - DYSPNOEA [None]
  - ELECTROCARDIOGRAM ST SEGMENT ABNORMAL [None]
  - FEELING ABNORMAL [None]
  - HAEMATOCRIT DECREASED [None]
  - HAEMOGLOBIN DECREASED [None]
  - HEADACHE [None]
  - HYPERCALCAEMIA [None]
  - LYMPHOCYTE COUNT DECREASED [None]
  - MYOCARDIAL INFARCTION [None]
  - NAUSEA [None]
  - PAIN IN EXTREMITY [None]
  - PROTEIN TOTAL DECREASED [None]
  - RALES [None]
  - RED BLOOD CELL SEDIMENTATION RATE INCREASED [None]
  - RENAL FAILURE ACUTE [None]
  - THINKING ABNORMAL [None]
  - THROMBOCYTOPENIA [None]
